FAERS Safety Report 4374543-3 (Version None)
Quarter: 2004Q2

REPORT INFORMATION
  Report Type: 
  Country: None (occurrence: None)
  Receive Date: 20040604
  Receipt Date: 20040525
  Transmission Date: 20050107
  Serious: Yes (Hospitalization, Other)
  Sender: FDA-Public Use
  Company Number: 2004215926US

PATIENT
  Age: 68 Year
  Sex: Female

DRUGS (2)
  1. HEPARIN SODIUM INJECTION [Suspect]
     Dosage: CYCLIC, IV
     Route: 042
  2. ARGATROBAN (ARGATROBAN) [Concomitant]

REACTIONS (11)
  - BONE LESION [None]
  - BONE MARROW DISORDER [None]
  - BONE NEOPLASM MALIGNANT [None]
  - CONDITION AGGRAVATED [None]
  - DYSPNOEA [None]
  - HAEMODIALYSIS [None]
  - HEPARIN-INDUCED THROMBOCYTOPENIA [None]
  - HYPERCALCAEMIA [None]
  - MEDICATION ERROR [None]
  - RENAL FAILURE [None]
  - TACHYPNOEA [None]
